FAERS Safety Report 9406611 (Version 1)
Quarter: 2013Q3

REPORT INFORMATION
  Report Type: Report from Study
  Country: CA (occurrence: CA)
  Receive Date: 20130718
  Receipt Date: 20130718
  Transmission Date: 20140515
  Serious: Yes (Hospitalization)
  Sender: FDA-Public Use
  Company Number: CA-JNJFOC-20130709713

PATIENT
  Age: 80 Year
  Sex: Female
  Weight: 59.42 kg

DRUGS (20)
  1. REMICADE [Suspect]
     Indication: RHEUMATOID ARTHRITIS
     Dosage: 52 INFUSIONS
     Route: 042
     Dates: start: 20080318
  2. EURO D [Concomitant]
     Route: 065
     Dates: start: 20130503, end: 20130522
  3. EURO D [Concomitant]
     Route: 065
     Dates: start: 20130708
  4. SYNTHROID [Concomitant]
     Route: 065
     Dates: start: 20130514
  5. SYNTHROID [Concomitant]
     Route: 065
     Dates: start: 20130708
  6. PREGABALIN [Concomitant]
     Route: 065
     Dates: start: 20130708
  7. VALSARTAN [Concomitant]
     Route: 065
     Dates: start: 20130708
  8. ASPIRIN [Concomitant]
     Route: 048
     Dates: start: 20130708
  9. CELEXA [Concomitant]
     Route: 065
     Dates: start: 20121203
  10. CELEXA [Concomitant]
     Route: 065
     Dates: start: 20130708
  11. PREMARIN [Concomitant]
     Dosage: 623 MCG/G, 1 APPLICATION ONCE A DAY IN THE VULVA FOR 2 WEEKS, THEN 1 APPLICATION TWICE A WEEK
     Route: 067
     Dates: start: 20130625
  12. VAGIFEM [Concomitant]
     Dosage: DURING 2 WEEKS AND THEN 1 VAGINAL TABLET TWICE A WEEK (AT 3 TO 4-DAY INTERVAL IN BETWEEN DOSES)
     Route: 067
     Dates: start: 20130625
  13. LYRICA [Concomitant]
     Route: 065
     Dates: start: 20130621
  14. LYRICA [Concomitant]
     Route: 065
     Dates: start: 20130523
  15. LOSEC [Concomitant]
     Route: 065
     Dates: start: 20130613
  16. LOSEC [Concomitant]
     Route: 065
     Dates: start: 20121113
  17. DOCUSATE SODIUM [Concomitant]
     Route: 065
     Dates: start: 20130312
  18. DOCUSATE SODIUM [Concomitant]
     Route: 065
     Dates: start: 20130604
  19. REFRESH EYE DROPS [Concomitant]
     Route: 047
     Dates: start: 20130514
  20. TYLENOL [Concomitant]
     Indication: ARTHRALGIA
     Route: 065
     Dates: start: 20130517

REACTIONS (2)
  - Cerebrovascular accident [Recovering/Resolving]
  - Facial paresis [Recovering/Resolving]
